FAERS Safety Report 24253343 (Version 1)
Quarter: 2024Q3

REPORT INFORMATION
  Report Type: Spontaneous
  Country: FR (occurrence: FR)
  Receive Date: 20240827
  Receipt Date: 20240827
  Transmission Date: 20241016
  Serious: Yes (Congenital Anomaly)
  Sender: RANBAXY
  Company Number: FR-SUN PHARMACEUTICAL INDUSTRIES LTD-2024RR-463779

PATIENT

DRUGS (4)
  1. PREGABALIN [Suspect]
     Active Substance: PREGABALIN
     Indication: Exposure during pregnancy
     Dosage: 1 DOSAGE FORM, DAILY
     Route: 064
     Dates: start: 20231124
  2. PAROXETINE [Suspect]
     Active Substance: PAROXETINE
     Indication: Exposure during pregnancy
     Dosage: 20 MILLIGRAM, DAILY
     Route: 064
     Dates: start: 20231124
  3. METHADONE [Suspect]
     Active Substance: METHADONE HYDROCHLORIDE
     Indication: Exposure during pregnancy
     Dosage: 30 MILLIGRAM, DAILY
     Route: 064
     Dates: start: 20231124
  4. ASPIRIN [Suspect]
     Active Substance: ASPIRIN
     Indication: Exposure during pregnancy
     Dosage: 100 MILLIGRAM, DAILY
     Route: 064
     Dates: start: 20231124

REACTIONS (1)
  - Holoprosencephaly [Not Recovered/Not Resolved]

NARRATIVE: CASE EVENT DATE: 20240229
